FAERS Safety Report 7277794-3 (Version None)
Quarter: 2011Q1

REPORT INFORMATION
  Report Type: 
  Country: None (occurrence: None)
  Receive Date: 20110207
  Receipt Date: 20110201
  Transmission Date: 20110831
  Serious: No
  Sender: FDA-Public Use
  Company Number: BR-BRACCO-000037

PATIENT
  Age: 62 Year
  Sex: Female

DRUGS (1)
  1. IOPAMIDOL [Suspect]
     Indication: PRODUCT USED FOR UNKNOWN INDICATION
     Route: 065
     Dates: start: 20100609, end: 20100609

REACTIONS (2)
  - UPPER AIRWAY OBSTRUCTION [None]
  - ERYTHEMA [None]
